FAERS Safety Report 8159524-6 (Version None)
Quarter: 2012Q1

REPORT INFORMATION
  Report Type: 
  Country: None (occurrence: None)
  Receive Date: 20120223
  Receipt Date: 20120214
  Transmission Date: 20120608
  Serious: Yes (Hospitalization, Other)
  Sender: FDA-Public Use
  Company Number: CH-ROCHE-1034265

PATIENT
  Sex: Female

DRUGS (2)
  1. ARAVA [Concomitant]
     Indication: RHEUMATOID ARTHRITIS
     Route: 048
  2. ACTEMRA [Suspect]
     Indication: RHEUMATOID ARTHRITIS
     Route: 042
     Dates: start: 20090320, end: 20110923

REACTIONS (6)
  - SKIN INFECTION [None]
  - ARTHRITIS BACTERIAL [None]
  - WEIGHT DECREASED [None]
  - ARTHRITIS INFECTIVE [None]
  - PYODERMA [None]
  - CELLULITIS [None]
